FAERS Safety Report 7814286-4 (Version None)
Quarter: 2011Q4

REPORT INFORMATION
  Report Type: 
  Country: None (occurrence: None)
  Receive Date: 20111011
  Receipt Date: 20110927
  Transmission Date: 20120403
  Serious: Yes (Other)
  Sender: FDA-Public Use
  Company Number: 2011090187

PATIENT
  Sex: Male

DRUGS (1)
  1. FELBATOL [Suspect]
     Indication: PETIT MAL EPILEPSY
     Dates: start: 20100101

REACTIONS (3)
  - CONDITION AGGRAVATED [None]
  - PETIT MAL EPILEPSY [None]
  - SINUSITIS [None]
